FAERS Safety Report 11026766 (Version 2)
Quarter: 2015Q2

REPORT INFORMATION
  Report Type: Spontaneous
  Country: US (occurrence: US)
  Receive Date: 20150414
  Receipt Date: 20150525
  Transmission Date: 20150821
  Serious: Yes (Other)
  Sender: FDA-Public Use
  Company Number: US-JNJFOC-20121009843

PATIENT
  Sex: Female
  Weight: 46.27 kg

DRUGS (6)
  1. ORTHO EVRA [Suspect]
     Active Substance: ETHINYL ESTRADIOL\NORELGESTROMIN
     Indication: MENSTRUAL DISORDER
     Route: 062
     Dates: start: 2012, end: 2012
  2. MONONESSA [Suspect]
     Active Substance: ETHINYL ESTRADIOL\NORGESTIMATE
     Indication: MENSTRUAL DISORDER
     Route: 048
     Dates: start: 201203, end: 201209
  3. ORTHO TRI CYCLEN LO [Suspect]
     Active Substance: ETHINYL ESTRADIOL\NORGESTIMATE
     Indication: MOOD SWINGS
     Route: 048
     Dates: start: 20120922
  4. MONONESSA [Suspect]
     Active Substance: ETHINYL ESTRADIOL\NORGESTIMATE
     Indication: MOOD SWINGS
     Route: 048
     Dates: start: 201203, end: 201209
  5. ORTHO EVRA [Suspect]
     Active Substance: ETHINYL ESTRADIOL\NORELGESTROMIN
     Indication: MOOD SWINGS
     Route: 062
     Dates: start: 2012, end: 2012
  6. ORTHO TRI CYCLEN LO [Suspect]
     Active Substance: ETHINYL ESTRADIOL\NORGESTIMATE
     Indication: MENSTRUAL DISORDER
     Route: 048
     Dates: start: 20120922

REACTIONS (4)
  - Product use issue [Unknown]
  - Menstruation delayed [Recovered/Resolved]
  - Disturbance in attention [Recovered/Resolved]
  - Mood swings [Recovered/Resolved]

NARRATIVE: CASE EVENT DATE: 2012
